FAERS Safety Report 9654286 (Version 1)
Quarter: 2013Q4

REPORT INFORMATION
  Report Type: Spontaneous
  Country: US (occurrence: US)
  Receive Date: 20131029
  Receipt Date: 20131029
  Transmission Date: 20140711
  Serious: No
  Sender: FDA-Public Use
  Company Number: US-BIOGENIDEC-2013BI084305

PATIENT
  Age: 56 Year
  Sex: Female

DRUGS (14)
  1. TECFIDERA [Suspect]
     Indication: MULTIPLE SCLEROSIS
     Dates: start: 20130707
  2. AMPYRA [Concomitant]
     Indication: GAIT DISTURBANCE
     Route: 048
     Dates: start: 20120605, end: 20130731
  3. AMPYRA [Concomitant]
     Indication: GAIT DISTURBANCE
     Route: 048
     Dates: start: 201308
  4. VENLAFAXINE XR [Concomitant]
  5. CALCITONIN SALMON NASAL SPRAY [Concomitant]
  6. RITALIN [Concomitant]
  7. INDOMETHACIN [Concomitant]
  8. BACLOFEN [Concomitant]
  9. ASPIRIN [Concomitant]
  10. VITAMIN D3 [Concomitant]
  11. FISH OIL [Concomitant]
  12. MAGNESIUM [Concomitant]
  13. DOCUSATE SODIUM [Concomitant]
  14. TYSABRI [Concomitant]

REACTIONS (5)
  - Mobility decreased [Not Recovered/Not Resolved]
  - Fall [Recovered/Resolved]
  - Laceration [Recovered/Resolved]
  - Drug ineffective [Unknown]
  - Gait disturbance [Recovered/Resolved]
